FAERS Safety Report 23906971 (Version 1)
Quarter: 2024Q2

REPORT INFORMATION
  Report Type: Report from Study
  Country: CA (occurrence: CA)
  Receive Date: 20240528
  Receipt Date: 20240528
  Transmission Date: 20240716
  Serious: Yes (Other)
  Sender: FDA-Public Use
  Company Number: CA-ARGENX-2024-ARGX-CA003651

PATIENT

DRUGS (3)
  1. VYVGART [Suspect]
     Active Substance: EFGARTIGIMOD ALFA-FCAB
     Indication: Myasthenia gravis
     Dosage: 660 MG
     Route: 042
     Dates: start: 20240404
  2. VYVGART [Suspect]
     Active Substance: EFGARTIGIMOD ALFA-FCAB
     Dosage: 650 MG
     Route: 042
     Dates: end: 20240426
  3. LORAZEPAM [Concomitant]
     Active Substance: LORAZEPAM
     Indication: Product used for unknown indication
     Dosage: UNK
     Route: 065

REACTIONS (3)
  - Myasthenia gravis [Not Recovered/Not Resolved]
  - Rhinorrhoea [Unknown]
  - Exposure to extreme temperature [Unknown]

NARRATIVE: CASE EVENT DATE: 20240501
